FAERS Safety Report 17521952 (Version 1)
Quarter: 2020Q1

REPORT INFORMATION
  Report Type: Spontaneous
  Country: US (occurrence: US)
  Receive Date: 20200310
  Receipt Date: 20200310
  Transmission Date: 20200409
  Serious: No
  Sender: FDA-Public Use
  Company Number: US-FARMAPROD-201911-1792

PATIENT
  Sex: Female

DRUGS (3)
  1. OXERVATE [Suspect]
     Active Substance: CENEGERMIN-BKBJ
     Indication: ULCERATIVE KERATITIS
  2. TIMOLOL. [Suspect]
     Active Substance: TIMOLOL
     Indication: PRODUCT USED FOR UNKNOWN INDICATION
  3. OXERVATE [Suspect]
     Active Substance: CENEGERMIN-BKBJ
     Indication: NEUROTROPHIC KERATOPATHY
     Route: 047

REACTIONS (9)
  - Eye pain [Unknown]
  - Ocular hyperaemia [Unknown]
  - Product dose omission [Unknown]
  - Abnormal sensation in eye [Unknown]
  - Eye swelling [Unknown]
  - Migraine [Unknown]
  - Therapy cessation [Unknown]
  - Medication error [Unknown]
  - Eye irritation [Unknown]
